FAERS Safety Report 12417618 (Version 5)
Quarter: 2016Q3

REPORT INFORMATION
  Report Type: Report from Study
  Country: CO (occurrence: CO)
  Receive Date: 20160530
  Receipt Date: 20160916
  Transmission Date: 20161109
  Serious: Yes (Other)
  Sender: FDA-Public Use
  Company Number: PHHY2016CO071682

PATIENT
  Age: 58 Year
  Sex: Female
  Weight: 64 kg

DRUGS (6)
  1. AMLODIPINE [Concomitant]
     Active Substance: AMLODIPINE BESYLATE
     Indication: TENSION
     Dosage: UNK UNK, BID
     Route: 065
  2. LOSARTAN. [Concomitant]
     Active Substance: LOSARTAN
     Indication: TENSION
     Dosage: UNK UNK, BID
     Route: 065
  3. TIROXINA [Concomitant]
     Active Substance: LEVOTHYROXINE SODIUM
     Indication: PRODUCT USED FOR UNKNOWN INDICATION
     Dosage: 100 MG, QD
     Route: 065
  4. CAPECITABINE. [Suspect]
     Active Substance: CAPECITABINE
     Indication: NEUROENDOCRINE TUMOUR
     Dosage: 500 MG, QID, FOR 14 DAYS AND REST FOR 7 DAYS
     Route: 048
  5. ESCITALOPRAM [Concomitant]
     Active Substance: ESCITALOPRAM OXALATE
     Indication: DEPRESSION
     Dosage: 20 MG, QD
     Route: 065
  6. SANDOSTATIN LAR DEPOT [Suspect]
     Active Substance: OCTREOTIDE ACETATE
     Indication: NEUROENDOCRINE TUMOUR
     Dosage: 30 MG, QMO
     Route: 030
     Dates: start: 20131130

REACTIONS (19)
  - Hepatic steatosis [Unknown]
  - Injection site mass [Not Recovered/Not Resolved]
  - Diarrhoea [Not Recovered/Not Resolved]
  - Application site pain [Unknown]
  - Vascular rupture [Recovering/Resolving]
  - Blood creatinine increased [Unknown]
  - Eating disorder [Unknown]
  - Liver disorder [Unknown]
  - Metastases to liver [Unknown]
  - Malignant neoplasm progression [Unknown]
  - Somnolence [Unknown]
  - Hyperlipidaemia [Unknown]
  - Blood potassium decreased [Unknown]
  - Hepatic lesion [Unknown]
  - Hernia [Unknown]
  - Hepatic mass [Unknown]
  - Hepatocellular injury [Unknown]
  - Weight decreased [Unknown]
  - Hepatomegaly [Unknown]

NARRATIVE: CASE EVENT DATE: 20131130
